FAERS Safety Report 8829478 (Version 1)
Quarter: 2012Q4

REPORT INFORMATION
  Report Type: 
  Country: US (occurrence: US)
  Receive Date: 20121008
  Receipt Date: 20121008
  Transmission Date: 20130627
  Serious: Yes (Other)
  Sender: FDA-Public Use
  Company Number: US-ROCHE-1133756

PATIENT
  Age: 88 Year

DRUGS (2)
  1. RITUXAN [Suspect]
     Indication: CHRONIC LYMPHOCYTIC LEUKAEMIA
     Route: 065
     Dates: start: 19991208
  2. RITUXAN [Suspect]
     Indication: LYMPHOCYTIC LYMPHOMA

REACTIONS (7)
  - White blood cell count increased [Unknown]
  - Thrombocytopenia [Unknown]
  - Fatigue [Unknown]
  - Dyspnoea exertional [Unknown]
  - Conjunctival hyperaemia [Unknown]
  - Diarrhoea [Unknown]
  - Seborrhoeic keratosis [Unknown]
